FAERS Safety Report 21339909 (Version 1)
Quarter: 2022Q3

REPORT INFORMATION
  Report Type: Spontaneous
  Country: US (occurrence: US)
  Receive Date: 20220915
  Receipt Date: 20220915
  Transmission Date: 20221026
  Serious: Yes (Hospitalization, Other)
  Sender: FDA-Public Use
  Company Number: US-BRISTOL-MYERS SQUIBB COMPANY-2022-106694

PATIENT
  Age: 73 Year
  Sex: Male
  Weight: 93.4 kg

DRUGS (59)
  1. HYDROXYUREA [Suspect]
     Active Substance: HYDROXYUREA
     Indication: Leukocytosis
     Dosage: BID
     Route: 048
     Dates: start: 20220717, end: 20220718
  2. HYDROXYUREA [Suspect]
     Active Substance: HYDROXYUREA
     Dosage: BID
     Route: 042
     Dates: start: 20220718, end: 20220720
  3. HYDROXYUREA [Suspect]
     Active Substance: HYDROXYUREA
     Dosage: ONCE
     Route: 048
     Dates: start: 20220720, end: 20220720
  4. HYDROXYUREA [Suspect]
     Active Substance: HYDROXYUREA
     Dosage: BID
     Route: 048
     Dates: start: 20220721, end: 20220721
  5. HYDROXYUREA [Suspect]
     Active Substance: HYDROXYUREA
     Dosage: BID
     Route: 048
     Dates: start: 20220722, end: 20220723
  6. HYDROXYUREA [Suspect]
     Active Substance: HYDROXYUREA
     Dosage: BID
     Route: 048
     Dates: start: 20220723, end: 20220725
  7. HYDROXYUREA [Suspect]
     Active Substance: HYDROXYUREA
     Dosage: BID
     Route: 048
     Dates: start: 20220726, end: 20220726
  8. HYDROXYUREA [Suspect]
     Active Substance: HYDROXYUREA
     Dosage: BID
     Route: 048
     Dates: start: 20220727, end: 20220821
  9. HYDROXYUREA [Suspect]
     Active Substance: HYDROXYUREA
     Dosage: BID
     Route: 048
     Dates: start: 20220822, end: 20220825
  10. VORICONAZOLE [Concomitant]
     Active Substance: VORICONAZOLE
     Indication: Antifungal prophylaxis
     Dosage: BID
     Route: 048
     Dates: start: 20220722, end: 20220805
  11. VORICONAZOLE [Concomitant]
     Active Substance: VORICONAZOLE
     Dosage: BID
     Route: 048
     Dates: start: 20220806, end: 20220811
  12. VORICONAZOLE [Concomitant]
     Active Substance: VORICONAZOLE
     Dosage: BID
     Route: 048
     Dates: start: 20220811, end: 20220813
  13. VORICONAZOLE [Concomitant]
     Active Substance: VORICONAZOLE
     Dosage: BID
     Route: 048
     Dates: start: 20220814, end: 20220826
  14. VORICONAZOLE [Concomitant]
     Active Substance: VORICONAZOLE
     Dosage: BID
     Route: 048
     Dates: start: 20220609, end: 20220722
  15. VORICONAZOLE [Concomitant]
     Active Substance: VORICONAZOLE
     Route: 048
     Dates: start: 20220828
  16. NEURONTIN [Concomitant]
     Active Substance: GABAPENTIN
     Indication: Neuropathy peripheral
     Dosage: 100MG PO TID
     Route: 048
     Dates: start: 20220825
  17. DEXAMETHASONE [Concomitant]
     Active Substance: DEXAMETHASONE
     Indication: Premedication
     Dosage: QD,
     Route: 042
     Dates: start: 20220722, end: 20220728
  18. CATHFLO ACTIVASE [Concomitant]
     Active Substance: ALTEPLASE
     Indication: Device occlusion
     Dosage: ONCE
     Route: 042
     Dates: start: 20220722, end: 20220722
  19. CATHFLO ACTIVASE [Concomitant]
     Active Substance: ALTEPLASE
     Dosage: ONCE
     Route: 042
     Dates: start: 20220728, end: 20220728
  20. ERAXIS [Concomitant]
     Active Substance: ANIDULAFUNGIN
     Indication: Antifungal prophylaxis
     Dosage: Q24H
     Route: 042
     Dates: start: 20220720, end: 20220729
  21. ERAXIS [Concomitant]
     Active Substance: ANIDULAFUNGIN
     Dosage: ONCE
     Route: 042
     Dates: start: 20220719, end: 20220719
  22. ZYLOPRIM [Concomitant]
     Active Substance: ALLOPURINOL
     Indication: Prophylaxis
     Dosage: QD
     Route: 048
     Dates: start: 20220722
  23. ACYCLOVIR [Concomitant]
     Active Substance: ACYCLOVIR
     Indication: Antiviral prophylaxis
     Dosage: BID
     Route: 048
     Dates: start: 20220524
  24. CYANOCOBALAMIN [Concomitant]
     Active Substance: CYANOCOBALAMIN
     Indication: Anaemia
     Dosage: OD
     Route: 048
     Dates: start: 20220610, end: 20220802
  25. MOXIFLOXACIN [Concomitant]
     Active Substance: MOXIFLOXACIN
     Indication: Antibiotic prophylaxis
     Dosage: QD
     Route: 048
     Dates: start: 20220713, end: 20220717
  26. MOXIFLOXACIN [Concomitant]
     Active Substance: MOXIFLOXACIN
     Dosage: QD
     Route: 048
     Dates: start: 20220802, end: 20220823
  27. SENNA LEAF [Concomitant]
     Active Substance: SENNA LEAF
     Indication: Constipation
     Dosage: PRN
     Route: 048
     Dates: start: 20220527
  28. MIRALAX [Concomitant]
     Active Substance: POLYETHYLENE GLYCOL 3350
     Indication: Constipation
     Dosage: PRN
     Route: 048
     Dates: start: 20220527
  29. SODIUM CHLORIDE [Concomitant]
     Active Substance: SODIUM CHLORIDE
     Indication: Nasal dryness
     Dosage: 1 SPRAY,, EACH NARE, PRN
     Route: 050
     Dates: start: 20220626
  30. FAMOTIDINE [Concomitant]
     Active Substance: FAMOTIDINE
     Indication: Transfusion
     Dosage: PRN
     Route: 048
     Dates: start: 20220623, end: 20220826
  31. DIPHENHYDRAMINE [Concomitant]
     Active Substance: DIPHENHYDRAMINE
     Indication: Transfusion
     Dosage: PRN
     Route: 048
     Dates: start: 20220615
  32. ACETAMINOPHEN [Concomitant]
     Active Substance: ACETAMINOPHEN
     Indication: Transfusion
     Dosage: PRN
     Route: 048
     Dates: start: 20220615
  33. ACETAMINOPHEN [Concomitant]
     Active Substance: ACETAMINOPHEN
     Indication: Pain
  34. ACETAMINOPHEN [Concomitant]
     Active Substance: ACETAMINOPHEN
     Indication: Pyrexia
  35. MEROPENEM [Concomitant]
     Active Substance: MEROPENEM
     Indication: Febrile neutropenia
     Dosage: Q8H
     Route: 042
     Dates: start: 20220718, end: 20220723
  36. VANCOCIN [Concomitant]
     Active Substance: VANCOMYCIN HYDROCHLORIDE
     Indication: Febrile neutropenia
     Dosage: Q24H
     Route: 042
     Dates: start: 20220729, end: 20220801
  37. VANCOCIN [Concomitant]
     Active Substance: VANCOMYCIN HYDROCHLORIDE
     Dosage: Q12H
     Route: 042
     Dates: start: 20220718, end: 20220728
  38. ROXICODONE [Concomitant]
     Active Substance: OXYCODONE HYDROCHLORIDE
     Indication: Pain
     Dosage: ONCE
     Route: 048
     Dates: start: 20220718, end: 20220718
  39. ROCALTROL [Concomitant]
     Active Substance: CALCITRIOL
     Indication: Prophylaxis
     Dosage: QD
     Route: 048
     Dates: start: 20220715, end: 20220803
  40. OYSCO [Concomitant]
     Indication: Prophylaxis
     Dosage: TID, 1 TABLET , CALCIUM CARBONATE ?1250 MG (OYSCO-  500) TABLET (500 MG CALCIUM)
     Route: 048
     Dates: start: 20220715, end: 20220802
  41. VITAMIN D3 [Concomitant]
     Active Substance: CHOLECALCIFEROL
     Indication: Prophylaxis
     Dosage: 1000 UNITS, QD
     Route: 048
     Dates: start: 20220715, end: 20220813
  42. ULTRAM [Concomitant]
     Active Substance: TRAMADOL HYDROCHLORIDE
     Indication: Pain
     Dosage: PRN
     Route: 048
     Dates: start: 20220717, end: 20220718
  43. NORVASC [Concomitant]
     Active Substance: AMLODIPINE BESYLATE
     Indication: Blood pressure increased
     Dosage: QD
     Route: 048
     Dates: start: 20220723, end: 20220724
  44. CIPROFLOXACIN [Concomitant]
     Active Substance: CIPROFLOXACIN
     Indication: Febrile neutropenia
     Dosage: Q12H
     Route: 048
     Dates: start: 20220723, end: 20220801
  45. POTASSIUM CHLORIDE [Concomitant]
     Active Substance: POTASSIUM CHLORIDE
     Indication: Hypokalaemia
     Dosage: POTASSIUM CHLORIDE SA, ONCE,
     Route: 048
     Dates: start: 20220803, end: 20220803
  46. POTASSIUM CHLORIDE [Concomitant]
     Active Substance: POTASSIUM CHLORIDE
     Indication: Blood potassium
     Dosage: POTASSIUM CHLORIDE SA, ONCE,
     Route: 048
     Dates: start: 20220808, end: 20220808
  47. POTASSIUM CHLORIDE [Concomitant]
     Active Substance: POTASSIUM CHLORIDE
     Dosage: X2
     Route: 042
     Dates: start: 20220807, end: 20220807
  48. LASIX [Concomitant]
     Active Substance: FUROSEMIDE
     Indication: Oedema
     Dosage: QD
     Route: 042
     Dates: start: 20220809, end: 20220813
  49. LASIX [Concomitant]
     Active Substance: FUROSEMIDE
     Route: 042
     Dates: start: 20220810, end: 20220811
  50. LASIX [Concomitant]
     Active Substance: FUROSEMIDE
     Route: 048
     Dates: start: 20220804, end: 20220806
  51. LASIX [Concomitant]
     Active Substance: FUROSEMIDE
     Route: 048
     Dates: start: 20220807, end: 20220809
  52. RENVELA [Concomitant]
     Active Substance: SEVELAMER CARBONATE
     Indication: Hyperphosphataemia
     Dosage: TID
     Route: 048
     Dates: start: 20220728, end: 20220807
  53. RENVELA [Concomitant]
     Active Substance: SEVELAMER CARBONATE
     Dosage: BID
     Route: 048
     Dates: start: 20220810, end: 20220812
  54. DECADRON [Concomitant]
     Active Substance: DEXAMETHASONE
     Indication: Swollen tongue
     Dosage: ONCE
     Route: 042
     Dates: start: 20220821, end: 20220821
  55. DECADRON [Concomitant]
     Active Substance: DEXAMETHASONE
     Dosage: ONCE
     Route: 042
     Dates: start: 20220822, end: 20220822
  56. SODIUM CHLORIDE [Concomitant]
     Active Substance: SODIUM CHLORIDE
     Indication: Hypophagia
     Dosage: ONCE
     Route: 042
     Dates: start: 20220821, end: 20220821
  57. CARAFATE [Concomitant]
     Active Substance: SUCRALFATE
     Indication: Oral pain
     Dosage: PRN
     Route: 048
     Dates: start: 20220821, end: 20220824
  58. VENELEX [Concomitant]
     Active Substance: BALSAM PERU\CASTOR OIL
     Indication: Skin ulcer
     Dosage: 1 APP, TID
     Route: 061
     Dates: start: 20220822, end: 20220822
  59. ALLOPURINOL [Concomitant]
     Active Substance: ALLOPURINOL
     Indication: Prophylaxis
     Route: 048
     Dates: start: 20220722

REACTIONS (2)
  - Stomatitis [Recovered/Resolved]
  - Febrile neutropenia [Recovered/Resolved]

NARRATIVE: CASE EVENT DATE: 20220818
